FAERS Safety Report 9771959 (Version 2)
Quarter: 2013Q4

REPORT INFORMATION
  Report Type: Spontaneous
  Country: DK (occurrence: DK)
  Receive Date: 20131219
  Receipt Date: 20131219
  Transmission Date: 20140711
  Serious: Yes (Disabling)
  Sender: FDA-Public Use
  Company Number: DK-GE HEALTHCARE MEDICAL DIAGNOSTICS-OSCN-NO-0902S-0107

PATIENT
  Age: 41 Year
  Sex: Female

DRUGS (11)
  1. OMNISCAN [Suspect]
     Indication: TRANSPLANT EVALUATION
     Route: 042
     Dates: start: 20050707, end: 20050707
  2. NEORECORMON [Concomitant]
  3. RAPAMUNE [Concomitant]
  4. PREDNISOLONE [Concomitant]
  5. SELO-ZOK [Concomitant]
  6. FURIX [Concomitant]
  7. KALEORID [Concomitant]
  8. HJERTEMAGNYL [Concomitant]
  9. ACTRAPID [Concomitant]
  10. INSULATARD [Concomitant]
  11. NORVASC [Concomitant]

REACTIONS (1)
  - Nephrogenic systemic fibrosis [Not Recovered/Not Resolved]
